FAERS Safety Report 14332433 (Version 2)
Quarter: 2018Q1

REPORT INFORMATION
  Report Type: Spontaneous
  Country: FR (occurrence: FR)
  Receive Date: 20171228
  Receipt Date: 20180110
  Transmission Date: 20180509
  Serious: Yes (Life-Threatening, Other)
  Sender: FDA-Public Use
  Company Number: FR-AUROBINDO-AUR-APL-2017-47250

PATIENT
  Age: 59 Year
  Sex: Female

DRUGS (6)
  1. ABILIFY [Suspect]
     Active Substance: ARIPIPRAZOLE
     Indication: PRODUCT USED FOR UNKNOWN INDICATION
     Dosage: 5 MG, QD
     Route: 048
  2. LAMICTAL [Suspect]
     Active Substance: LAMOTRIGINE
     Indication: PRODUCT USED FOR UNKNOWN INDICATION
     Dosage: 200 MG, BID
     Route: 048
  3. LAMOTRIGINE. [Suspect]
     Active Substance: LAMOTRIGINE
     Indication: PRODUCT USED FOR UNKNOWN INDICATION
     Dosage: 200 MG, BID
     Route: 048
  4. LAMICTAL [Suspect]
     Active Substance: LAMOTRIGINE
     Dosage: 200 MG, BID
     Route: 048
     Dates: start: 20161126
  5. TERCIAN                            /00759301/ [Suspect]
     Active Substance: CYAMEMAZINE
     Indication: PRODUCT USED FOR UNKNOWN INDICATION
     Dosage: 25 MG, QD
     Route: 048
  6. ABILIFY [Suspect]
     Active Substance: ARIPIPRAZOLE
     Dosage: 5 MG, QD
     Route: 048
     Dates: start: 20161126

REACTIONS (10)
  - Suicide attempt [Unknown]
  - Agitation [Recovered/Resolved]
  - Poisoning deliberate [Recovered/Resolved]
  - Rhabdomyolysis [Unknown]
  - Head injury [Unknown]
  - Poisoning [Recovered/Resolved]
  - Vomiting [Recovered/Resolved]
  - Intentional product misuse [Unknown]
  - Confusional state [Recovered/Resolved]
  - Aggression [Recovered/Resolved]

NARRATIVE: CASE EVENT DATE: 20161128
